FAERS Safety Report 8037277-X (Version None)
Quarter: 2012Q1

REPORT INFORMATION
  Report Type: 
  Country: None (occurrence: None)
  Receive Date: 20120111
  Receipt Date: 20120106
  Transmission Date: 20120608
  Serious: Yes (Life-Threatening, Hospitalization)
  Sender: FDA-Public Use
  Company Number: US-MERCK-1201USA00694

PATIENT
  Age: 80 Year
  Sex: Female

DRUGS (20)
  1. FAMOTIDINE [Concomitant]
     Route: 065
  2. CALCIUM CITRATE [Concomitant]
     Route: 065
  3. OXYCODONE [Concomitant]
     Route: 065
  4. FOLIC ACID [Concomitant]
     Route: 065
  5. ERGOCALCIFEROL [Concomitant]
     Route: 065
  6. DECADRON [Suspect]
     Indication: MULTIPLE MYELOMA
     Route: 048
     Dates: start: 20110517, end: 20110524
  7. MORPHINE [Concomitant]
     Route: 065
  8. MEGACE [Concomitant]
     Route: 065
  9. SENNA [Concomitant]
     Route: 065
  10. ASPIRIN [Concomitant]
     Route: 048
  11. REVLIMID [Suspect]
     Indication: MULTIPLE MYELOMA
     Route: 048
     Dates: start: 20110517, end: 20110524
  12. REVLIMID [Suspect]
     Route: 048
     Dates: start: 20110617
  13. LEVOTHYROXINE SODIUM [Concomitant]
     Route: 065
  14. REQUIP [Concomitant]
     Route: 065
  15. AMBIEN [Concomitant]
     Route: 065
  16. CYMBALTA [Concomitant]
     Route: 065
  17. METHOTREXATE [Concomitant]
     Route: 065
  18. GABAPENTIN [Concomitant]
     Route: 065
  19. ACYCLOVIR [Concomitant]
     Route: 065
  20. VITAMINS (UNSPECIFIED) [Concomitant]
     Route: 065

REACTIONS (8)
  - SOMNOLENCE [None]
  - PYREXIA [None]
  - DISEASE PROGRESSION [None]
  - STOMATITIS [None]
  - DIARRHOEA [None]
  - WEIGHT DECREASED [None]
  - ENDOCARDITIS [None]
  - ASTHENIA [None]
